FAERS Safety Report 5550580-8 (Version None)
Quarter: 2007Q4

REPORT INFORMATION
  Report Type: 
  Country: None (occurrence: None)
  Receive Date: 20071212
  Receipt Date: 20071129
  Transmission Date: 20080405
  Serious: Yes (Hospitalization)
  Sender: FDA-Public Use
  Company Number: JP-ELI_LILLY_AND_COMPANY-JP200712000849

PATIENT
  Sex: Male
  Weight: 79 kg

DRUGS (17)
  1. PEMETREXED [Suspect]
     Indication: PLEURAL MESOTHELIOMA MALIGNANT
     Dosage: 900 MG, OTHER
     Route: 042
     Dates: start: 20070515, end: 20070515
  2. PEMETREXED [Suspect]
     Dosage: 675 MG, OTHER
     Route: 042
     Dates: start: 20070613, end: 20070613
  3. CISPLATIN [Suspect]
     Indication: PLEURAL MESOTHELIOMA MALIGNANT
     Dosage: 135 MG, OTHER
     Route: 042
     Dates: start: 20070515, end: 20070515
  4. CISPLATIN [Suspect]
     Dosage: 100 MG, OTHER
     Route: 042
     Dates: start: 20070613, end: 20070613
  5. PANVITAN [Concomitant]
     Dosage: 1 G, DAILY (1/D)
     Route: 048
     Dates: start: 20070508, end: 20070704
  6. CYANOCOBALAMIN [Concomitant]
     Dosage: 1 G, UNK
     Route: 030
     Dates: start: 20070508, end: 20070508
  7. OXYCONTIN [Concomitant]
     Indication: CANCER PAIN
     Dosage: 10 MG, DAILY (1/D)
     Route: 048
  8. MAGNESIUM OXIDE [Concomitant]
     Indication: PROPHYLAXIS
     Dosage: 6 G, DAILY (1/D)
     Route: 048
  9. DECADRON [Concomitant]
     Indication: PROPHYLAXIS
     Dosage: 8 MG, UNK
     Route: 042
     Dates: start: 20070515, end: 20070614
  10. KYTRIL [Concomitant]
     Indication: PROPHYLAXIS
     Dosage: 3 MG, UNK
     Route: 042
     Dates: start: 20070515, end: 20070614
  11. VOLTAREN /00372301/ [Concomitant]
     Indication: CANCER PAIN
     Dosage: 25 MG, DAILY (1/D)
     Route: 054
  12. SOLU-MEDROL [Concomitant]
     Indication: PROPHYLAXIS
     Dosage: 250 MG, UNK
     Route: 042
     Dates: start: 20070515, end: 20070614
  13. FAMOTIDINE [Concomitant]
     Indication: PROPHYLAXIS
     Dosage: 40 MG, DAILY (1/D)
     Route: 048
  14. MUCOSTA [Concomitant]
     Indication: PROPHYLAXIS
     Dosage: 300 MG, DAILY (1/D)
     Route: 048
  15. OPSO [Concomitant]
     Indication: CANCER PAIN
     Dosage: 5 MG, DAILY (1/D)
     Route: 048
  16. RHYTHMY [Concomitant]
     Indication: PROPHYLAXIS
     Dosage: 2 MG, DAILY (1/D)
     Route: 048
  17. RINDERON-VG [Concomitant]
     Indication: PROPHYLAXIS
     Dosage: UNK, OTHER
     Route: 062
     Dates: start: 20070530

REACTIONS (1)
  - ILEUS [None]
